FAERS Safety Report 7031693-0 (Version None)
Quarter: 2010Q4

REPORT INFORMATION
  Report Type: 
  Country: None (occurrence: None)
  Receive Date: 20101007
  Receipt Date: 20100928
  Transmission Date: 20110411
  Serious: Yes (Hospitalization)
  Sender: FDA-Public Use
  Company Number: IT-SP-E2010-05816

PATIENT
  Sex: Female

DRUGS (2)
  1. TUBERSOL [Suspect]
     Indication: IMMUNISATION
     Route: 023
     Dates: start: 20100913, end: 20100913
  2. TUBERSOL [Suspect]
     Dates: start: 20100913, end: 20100913

REACTIONS (3)
  - ANAPHYLACTOID REACTION [None]
  - MALAISE [None]
  - THROAT TIGHTNESS [None]
